FAERS Safety Report 10312910 (Version 2)
Quarter: 2015Q1

REPORT INFORMATION
  Report Type: Spontaneous
  Country: US (occurrence: US)
  Receive Date: 20140718
  Receipt Date: 20150205
  Transmission Date: 20150720
  Serious: No
  Sender: FDA-Public Use
  Company Number: US-PFIZER INC-2014196242

PATIENT
  Age: 67 Year
  Sex: Female
  Weight: 58 kg

DRUGS (33)
  1. EFFEXOR [Suspect]
     Active Substance: VENLAFAXINE HYDROCHLORIDE
     Dosage: UNK
  2. LOMOTIL [Suspect]
     Active Substance: ATROPINE SULFATE\DIPHENOXYLATE HYDROCHLORIDE
     Dosage: UNK
  3. AVELOX [Suspect]
     Active Substance: MOXIFLOXACIN HYDROCHLORIDE
     Dosage: UNK
  4. ATIVAN [Suspect]
     Active Substance: LORAZEPAM
     Dosage: UNK
  5. CHYMOTRYPSIN [Suspect]
     Active Substance: CHYMOTRYPSIN
     Dosage: UNK
  6. BELLADENAL [Suspect]
     Active Substance: BELLADONNA LEAF\PHENOBARBITAL
     Dosage: UNK
  7. BETADINE [Suspect]
     Active Substance: POVIDONE-IODINE
     Dosage: UNK
  8. INDOMETHACIN. [Suspect]
     Active Substance: INDOMETHACIN
     Dosage: UNK
  9. PHENERGAN [Suspect]
     Active Substance: PROMETHAZINE HYDROCHLORIDE
     Dosage: UNK
  10. RITUXAN [Suspect]
     Active Substance: RITUXIMAB
     Dosage: UNK
  11. SECONAL [Suspect]
     Active Substance: SECOBARBITAL
     Dosage: UNK
  12. SOMA [Suspect]
     Active Substance: CARISOPRODOL
     Dosage: UNK
  13. SPARINE [Suspect]
     Active Substance: PROMAZINE HYDROCHLORIDE
     Dosage: UNK
  14. THORAZINE [Suspect]
     Active Substance: CHLORPROMAZINE
     Dosage: UNK
  15. CIMZIA [Suspect]
     Active Substance: CERTOLIZUMAB PEGOL
     Dosage: 400 MG, EVERY 4 WEEKS
     Dates: end: 20140408
  16. ZOLOFT [Suspect]
     Active Substance: SERTRALINE HYDROCHLORIDE
     Dosage: UNK
  17. PENICILLIN G [Suspect]
     Active Substance: PENICILLIN G
     Dosage: UNK
  18. SYNTHROID [Suspect]
     Active Substance: LEVOTHYROXINE SODIUM
     Dosage: UNK
  19. DILANTIN [Suspect]
     Active Substance: PHENYTOIN
     Dosage: UNK
  20. CODEINE [Suspect]
     Active Substance: CODEINE
     Dosage: UNK
  21. COMPAZINE [Suspect]
     Active Substance: PROCHLORPERAZINE MALEATE
     Dosage: UNK
  22. DILAUDID [Suspect]
     Active Substance: HYDROMORPHONE HYDROCHLORIDE
     Dosage: UNK
  23. PHENOTHIAZINE [Suspect]
     Active Substance: PHENOTHIAZINE
     Dosage: UNK
  24. SELDANE [Suspect]
     Active Substance: TERFENADINE
     Dosage: UNK
  25. VICODIN [Suspect]
     Active Substance: ACETAMINOPHEN\HYDROCODONE BITARTRATE
     Dosage: UNK
  26. ALLEGRA [Suspect]
     Active Substance: FEXOFENADINE HYDROCHLORIDE
     Dosage: UNK
  27. ELAVIL [Suspect]
     Active Substance: AMITRIPTYLINE HYDROCHLORIDE
     Dosage: UNK
  28. PHISOHEX [Suspect]
     Active Substance: HEXACHLOROPHENE
     Dosage: UNK
  29. TALWIN [Suspect]
     Active Substance: PENTAZOCINE LACTATE
     Dosage: UNK
  30. TOLMETIN [Suspect]
     Active Substance: TOLMETIN
     Dosage: UNK
  31. ERYTHROMYCIN. [Suspect]
     Active Substance: ERYTHROMYCIN
     Dosage: UNK
  32. QUININE SULFATE. [Suspect]
     Active Substance: QUININE SULFATE
     Dosage: UNK
  33. CIMZIA [Suspect]
     Active Substance: CERTOLIZUMAB PEGOL
     Dosage: 400 MG WEEKS 0, 2 AND 4
     Dates: start: 20140313

REACTIONS (1)
  - Drug hypersensitivity [Unknown]
